FAERS Safety Report 7275652-1 (Version None)
Quarter: 2011Q1

REPORT INFORMATION
  Report Type: 
  Country: None (occurrence: None)
  Receive Date: 20110204
  Receipt Date: 20110126
  Transmission Date: 20110831
  Serious: Yes (Other)
  Sender: FDA-Public Use
  Company Number: CA-JNJFOC-20110107775

PATIENT
  Sex: Male
  Weight: 83.7 kg

DRUGS (10)
  1. REMICADE [Suspect]
     Indication: ANKYLOSING SPONDYLITIS
     Route: 042
  2. PRILOSEC [Concomitant]
     Indication: GASTRIC DISORDER
  3. ZOPICLONE [Concomitant]
     Indication: SEDATION
  4. EMTEC [Concomitant]
     Indication: PAIN
  5. SODIUM BICARBONATE [Concomitant]
     Indication: GASTRIC DISORDER
  6. HYZAAR [Concomitant]
     Indication: HYPERTENSION
  7. VITAMIN TAB [Concomitant]
  8. ALLOPURINOL [Concomitant]
     Indication: GOUT
  9. PANTOLOC [Concomitant]
     Indication: GASTRIC DISORDER
  10. EFFEXOR [Concomitant]
     Indication: DEPRESSION

REACTIONS (1)
  - DIVERTICULITIS [None]
